FAERS Safety Report 16008309 (Version 3)
Quarter: 2019Q2

REPORT INFORMATION
  Report Type: Report from Study
  Country: BR (occurrence: BR)
  Receive Date: 20190225
  Receipt Date: 20190411
  Transmission Date: 20190711
  Serious: Yes (Other)
  Sender: FDA-Public Use
  Company Number: BR-EMD SERONO-9058752

PATIENT
  Sex: Female

DRUGS (3)
  1. IBUPROFEN. [Concomitant]
     Active Substance: IBUPROFEN
     Indication: PREMEDICATION
     Dosage: TOOK ONE HOUR BEFORE INJECTION
     Dates: start: 2018
  2. REBIF [Suspect]
     Active Substance: INTERFERON BETA-1A
     Indication: MULTIPLE SCLEROSIS
     Route: 058
     Dates: start: 20180907, end: 20190213
  3. DIPIRONA [Concomitant]
     Active Substance: METAMIZOLE
     Indication: PREMEDICATION
     Dosage: TOOK ONE HOUR BEFORE INJECTION
     Dates: start: 2018

REACTIONS (9)
  - Wound [Recovering/Resolving]
  - Alopecia [Not Recovered/Not Resolved]
  - Blister [Recovering/Resolving]
  - Hypersensitivity [Recovering/Resolving]
  - Mass [Recovering/Resolving]
  - Skin discolouration [Recovering/Resolving]
  - Injection site bruising [Recovered/Resolved]
  - Dermatitis bullous [Recovering/Resolving]
  - Musculoskeletal stiffness [Unknown]

NARRATIVE: CASE EVENT DATE: 2018
